FAERS Safety Report 14387306 (Version 1)
Quarter: 2018Q1

REPORT INFORMATION
  Report Type: Report from Study
  Country: US (occurrence: US)
  Receive Date: 20180115
  Receipt Date: 20180115
  Transmission Date: 20180509
  Serious: Yes (Hospitalization, Other)
  Sender: FDA-Public Use
  Company Number: US-BAYER-2017-204328

PATIENT
  Age: 55 Year
  Sex: Female

DRUGS (1)
  1. STIVARGA [Suspect]
     Active Substance: REGORAFENIB
     Indication: COLON CANCER
     Dosage: DAILY DOSE 120 MG (3 TABLETS X 40MG, 21 DAYS ON, 7 DAYS OFF)
     Route: 048
     Dates: start: 20171016

REACTIONS (20)
  - Intestinal obstruction [None]
  - Skin induration [None]
  - Dizziness [Recovered/Resolved]
  - Blood pressure increased [Not Recovered/Not Resolved]
  - Blood pressure increased [Recovered/Resolved]
  - Diarrhoea [Recovered/Resolved]
  - Headache [Recovering/Resolving]
  - Fatigue [Not Recovered/Not Resolved]
  - Pyrexia [Recovered/Resolved]
  - Renal injury [Unknown]
  - Constipation [Recovered/Resolved]
  - Traumatic lung injury [Unknown]
  - Hyperkeratosis [None]
  - Hypertension [Unknown]
  - Blister [Recovered/Resolved]
  - Vomiting [Recovered/Resolved]
  - Pain in extremity [Recovered/Resolved]
  - Neck pain [Not Recovered/Not Resolved]
  - Weight decreased [None]
  - Off label use [None]

NARRATIVE: CASE EVENT DATE: 2017
